FAERS Safety Report 8992925 (Version 4)
Quarter: 2019Q4

REPORT INFORMATION
  Report Type: Spontaneous
  Country: US (occurrence: US)
  Receive Date: 20130102
  Receipt Date: 20191219
  Transmission Date: 20200122
  Serious: Yes (Other)
  Sender: FDA-Public Use
  Company Number: US-UCBSA-074135

PATIENT
  Age: 50 Year
  Sex: Female
  Weight: 77.11 kg

DRUGS (27)
  1. CYANOCOBALAM [Concomitant]
     Active Substance: CYANOCOBALAMIN
     Dosage: DOSE: 1000 MCG INJ 1 ML VIAL, INJECT 1 ML IN THE MUSCLE MONTHLY
  2. CLONIDINE. [Concomitant]
     Active Substance: CLONIDINE
     Dosage: DOSE: 0.1 MG TAB UDL, 1 TABLET TWICE DAILY
  3. CARVEDILOL. [Concomitant]
     Active Substance: CARVEDILOL
     Dosage: DOSE: 25 MG TEV, 1 TABLET TWICE DAILY
  4. LYRICA [Concomitant]
     Active Substance: PREGABALIN
     Dosage: 75 MG, ONCE DAILY (QD)
  5. PRENATAL VITAMINS [Concomitant]
     Active Substance: VITAMINS
     Dosage: DOSE: 1 PILL DAILY
  6. DICYCLOMINE [Concomitant]
     Active Substance: DICYCLOMINE HYDROCHLORIDE
     Dosage: 10 MG, 4X/DAY (QID)
  7. METHOCARBAMOL. [Concomitant]
     Active Substance: METHOCARBAMOL
     Dosage: 50 MG, 2X/DAY (BID)
  8. LIPOFEN [Concomitant]
     Active Substance: FENOFIBRATE
     Dosage: 150 MG, ONCE DAILY (QD)
  9. ROPINIROLE. [Concomitant]
     Active Substance: ROPINIROLE
     Dosage: 1 MG, ONCE DAILY (QD)
  10. TRAMADOL. [Concomitant]
     Active Substance: TRAMADOL
     Dosage: DOSE: 50 MG 1-2 TABLETS EVERY 6 HOURS AS NEEDED
  11. ASPIRIN. [Concomitant]
     Active Substance: ASPIRIN
     Dosage: 81 MILLIGRAM
  12. HUMIRA [Concomitant]
     Active Substance: ADALIMUMAB
     Dosage: UNKNOWN DOSE
     Dates: start: 201209, end: 201211
  13. ZINC. [Concomitant]
     Active Substance: ZINC
     Dosage: DOSE: MAGNESIUM W/ZINC 400 MG + 15 MG 1 TABLET DAILY
  14. OMEPRAZOLE. [Concomitant]
     Active Substance: OMEPRAZOLE
     Dosage: 20 MG, ONCE DAILY (QD)
  15. ESTRADIOL. [Concomitant]
     Active Substance: ESTRADIOL
     Dosage: 2 MG, ONCE DAILY (QD)
  16. CITALOPRAM [Concomitant]
     Active Substance: CITALOPRAM HYDROBROMIDE
     Dosage: 20 MG, ONCE DAILY (QD)
  17. CHOLESTYRAMINE. [Concomitant]
     Active Substance: CHOLESTYRAMINE
     Dosage: DOSE; 4 GM PACKETS 60^S 1 PACKET TWICW DAILY
  18. LUNESTA [Concomitant]
     Active Substance: ESZOPICLONE
     Dosage: 2 MG, ONCE DAILY (QD)
  19. CHLORPHENIRAMINE MALEATE + PHENYLEPHRINE HCI [Concomitant]
     Dosage: DOSE: 1 EVERY 4-6 HOURS
  20. CIMZIA [Suspect]
     Active Substance: CERTOLIZUMAB PEGOL
     Indication: CROHN^S DISEASE
     Dosage: 400 MG, WEEKLY (QW)
     Route: 058
     Dates: start: 20121221, end: 20121227
  21. POTASSIUM CL [Concomitant]
     Active Substance: POTASSIUM CHLORIDE
     Dosage: 10 MEQ, ONCE DAILY (QD)
  22. AMITRIPTYLINE [Concomitant]
     Active Substance: AMITRIPTYLINE
     Dosage: 50 MG, ONCE DAILY (QD)
  23. VITAMIN D [Concomitant]
     Active Substance: VITAMIN D NOS
     Dosage: DOSE: VIT D 50,000 IU D2 (ERGO) CAPS (RX) 1 CAPSULE EVERY WEEK
  24. AZATHIOPRINE. [Concomitant]
     Active Substance: AZATHIOPRINE
     Dosage: 50 MG, 2X/DAY (BID)
  25. RANITIDINE. [Concomitant]
     Active Substance: RANITIDINE
     Dosage: DOSE: 150 MG AMN, 1 TABLET TWICE DAILY
  26. CALCIUM W/VITAMIN D3 [Concomitant]
     Active Substance: CALCIUM\CHOLECALCIFEROL
     Dosage: DOSE: CALCIUM 600 MG + 500 IU VITAMIN D3 1 TABLET TWICE DAILY
  27. MAGNESIUM W/ZINC [Concomitant]
     Dosage: DOSE: MAGNESIUM W/ZINC 400 MG + 15 MG 1 TABLET DAILY

REACTIONS (1)
  - Urticaria [Recovered/Resolved]

NARRATIVE: CASE EVENT DATE: 20121221
